FAERS Safety Report 15990727 (Version 4)
Quarter: 2019Q2

REPORT INFORMATION
  Report Type: Report from Study
  Country: GB (occurrence: GB)
  Receive Date: 20190221
  Receipt Date: 20190423
  Transmission Date: 20190711
  Serious: Yes (Hospitalization)
  Sender: FDA-Public Use
  Company Number: GB-JNJFOC-20190219818

PATIENT
  Sex: Female

DRUGS (1)
  1. STELARA [Suspect]
     Active Substance: USTEKINUMAB
     Indication: PSORIASIS
     Route: 058
     Dates: start: 20170515

REACTIONS (6)
  - Sepsis [Unknown]
  - Liver disorder [Unknown]
  - Urinary tract infection [Recovered/Resolved]
  - Cholelithiasis [Unknown]
  - Diarrhoea [Recovered/Resolved]
  - Abdominal pain [Unknown]
